FAERS Safety Report 4779566-8 (Version None)
Quarter: 2005Q3

REPORT INFORMATION
  Report Type: 
  Country: None (occurrence: None)
  Receive Date: 20050923
  Receipt Date: 20050913
  Transmission Date: 20060218
  Serious: Yes (Hospitalization)
  Sender: FDA-Public Use
  Company Number: CIP05002131

PATIENT
  Age: 55 Year
  Sex: Female

DRUGS (2)
  1. ACTONEL [Suspect]
     Indication: OSTEOPOROSIS
     Dosage: 35 MG ONCE WEEKLY, ORAL
     Route: 048
     Dates: start: 20030101
  2. RISPERDAL [Concomitant]

REACTIONS (4)
  - APPENDICITIS PERFORATED [None]
  - CYANOSIS [None]
  - DYSPHAGIA [None]
  - FAECALITH [None]
